FAERS Safety Report 6739521-5 (Version None)
Quarter: 2010Q2

REPORT INFORMATION
  Report Type: 
  Country: None (occurrence: None)
  Receive Date: 20100525
  Receipt Date: 20100518
  Transmission Date: 20101027
  Serious: Yes (Other)
  Sender: FDA-Public Use
  Company Number: US-RB-009499-10

PATIENT
  Age: 58 Year
  Sex: Female

DRUGS (6)
  1. SUBOXONE [Suspect]
     Indication: DRUG DEPENDENCE
     Route: 060
     Dates: start: 20090101, end: 20090101
  2. SUBOXONE [Suspect]
     Route: 060
     Dates: start: 20090101
  3. SUBOXONE [Suspect]
     Route: 060
     Dates: start: 20080101, end: 20080101
  4. SUBOXONE [Suspect]
     Route: 060
     Dates: start: 20080101, end: 20080101
  5. SUBOXONE [Suspect]
     Route: 060
     Dates: start: 20080101, end: 20090101
  6. ADDERALL 30 [Concomitant]
     Indication: SOMNOLENCE
     Dosage: UNKNOWN DOSING DETAILS
     Route: 065

REACTIONS (4)
  - DEPRESSION [None]
  - DRUG WITHDRAWAL SYNDROME [None]
  - SOMNOLENCE [None]
  - SUICIDAL IDEATION [None]
